FAERS Safety Report 8154561-X (Version None)
Quarter: 2012Q1

REPORT INFORMATION
  Report Type: 
  Country: None (occurrence: None)
  Receive Date: 20120221
  Receipt Date: 20120210
  Transmission Date: 20120608
  Serious: Yes (Other)
  Sender: FDA-Public Use
  Company Number: CN-GENZYME-CERZ-1002410

PATIENT
  Sex: Male
  Weight: 25 kg

DRUGS (3)
  1. OXCARBAZEPINE [Concomitant]
     Indication: CONVULSION
     Dosage: 2 OTHER, BID
     Route: 048
  2. CALCIUM [Concomitant]
     Indication: SUPPLEMENTATION THERAPY
     Dosage: 1 OTHER, QD
     Route: 048
     Dates: start: 20120131, end: 20120209
  3. CEREZYME [Suspect]
     Indication: GAUCHER'S DISEASE
     Dosage: 800 U, Q4W
     Route: 042
     Dates: start: 20090816, end: 20111128

REACTIONS (2)
  - CONVULSION [None]
  - TREMOR [None]
